FAERS Safety Report 20891639 (Version 3)
Quarter: 2022Q3

REPORT INFORMATION
  Report Type: Other
  Country: JP (occurrence: JP)
  Receive Date: 20220530
  Receipt Date: 20220819
  Transmission Date: 20221027
  Serious: Yes (Hospitalization)
  Sender: FDA-Public Use
  Company Number: JP-CHUGAI-A2019040706ROCHE

PATIENT
  Age: 52 Year
  Sex: Male

DRUGS (6)
  1. AVASTIN [Suspect]
     Active Substance: BEVACIZUMAB
     Indication: Anal cancer
     Dosage: 100 MILLIGRAM/SQ. METER, QD
     Route: 041
  2. XELODA [Suspect]
     Active Substance: CAPECITABINE
     Indication: Anal cancer
     Route: 048
  3. XELODA [Suspect]
     Active Substance: CAPECITABINE
     Route: 048
  4. OXALIPLATIN [Suspect]
     Active Substance: OXALIPLATIN
     Indication: Anal cancer
     Route: 065
  5. IRINOTECAN HYDROCHLORIDE [Concomitant]
     Active Substance: IRINOTECAN HYDROCHLORIDE
     Indication: Anal cancer
     Dosage: DOSAGE IS UNCERTAIN.
     Route: 041
  6. GIMERACIL\OTERACIL\TEGAFUR [Concomitant]
     Active Substance: GIMERACIL\OTERACIL\TEGAFUR
     Indication: Anal cancer
     Dosage: DOSAGE IS UNCERTAIN.
     Route: 048

REACTIONS (4)
  - Fournier^s gangrene [Recovered/Resolved]
  - Septic shock [Unknown]
  - Off label use [Unknown]
  - Disease progression [Unknown]
